FAERS Safety Report 6829352-X (Version None)
Quarter: 2010Q3

REPORT INFORMATION
  Report Type: 
  Country: None (occurrence: None)
  Receive Date: 20100709
  Receipt Date: 20070424
  Transmission Date: 20110219
  Serious: No
  Sender: FDA-Public Use
  Company Number: US-PFIZER INC-2007017260

PATIENT
  Sex: Female
  Weight: 74.84 kg

DRUGS (3)
  1. CHANTIX [Suspect]
     Indication: SMOKING CESSATION THERAPY
     Dates: start: 20070227, end: 20070301
  2. AMBIEN [Concomitant]
  3. COUGH AND COLD PREPARATIONS [Concomitant]
     Dates: start: 20070201

REACTIONS (4)
  - AGGRESSION [None]
  - ANGER [None]
  - DEPRESSION [None]
  - IRRITABILITY [None]
